FAERS Safety Report 14423262 (Version 1)
Quarter: 2018Q1

REPORT INFORMATION
  Report Type: Spontaneous
  Country: US (occurrence: US)
  Receive Date: 20180123
  Receipt Date: 20180123
  Transmission Date: 20180509
  Serious: No
  Sender: FDA-Public Use
  Company Number: US-JNJFOC-20171120016

PATIENT

DRUGS (1)
  1. REMICADE [Suspect]
     Active Substance: INFLIXIMAB
     Indication: PRODUCT USED FOR UNKNOWN INDICATION
     Dosage: FOR 8 YEARS
     Route: 042

REACTIONS (4)
  - JC polyomavirus test positive [Unknown]
  - Anosmia [Unknown]
  - Ageusia [Unknown]
  - Antinuclear antibody positive [Unknown]
